FAERS Safety Report 10345905 (Version 1)
Quarter: 2014Q3

REPORT INFORMATION
  Report Type: Spontaneous
  Country: GB (occurrence: GB)
  Receive Date: 20140728
  Receipt Date: 20140728
  Transmission Date: 20150326
  Serious: Yes (Death, Hospitalization, Other)
  Sender: FDA-Public Use
  Company Number: GB-JNJFOC-20140715750

PATIENT
  Age: 60 Year
  Sex: Female

DRUGS (1)
  1. RIVAROXABAN [Suspect]
     Active Substance: RIVAROXABAN
     Indication: THROMBOSIS PROPHYLAXIS
     Route: 048

REACTIONS (9)
  - Hypereosinophilic syndrome [Unknown]
  - Brain stem syndrome [Fatal]
  - Myocardial infarction [Unknown]
  - Multi-organ failure [Fatal]
  - Pulmonary eosinophilia [Unknown]
  - Muscle haemorrhage [Unknown]
  - Haemorrhagic transformation stroke [Unknown]
  - Neutropenic sepsis [Unknown]
  - Transverse sinus thrombosis [Unknown]
